FAERS Safety Report 13599200 (Version 4)
Quarter: 2018Q3

REPORT INFORMATION
  Report Type: Report from Study
  Country: US (occurrence: US)
  Receive Date: 20170531
  Receipt Date: 20180821
  Transmission Date: 20181010
  Serious: Yes (Hospitalization)
  Sender: FDA-Public Use
  Company Number: US-ACTELION-A-US2016-132101

PATIENT
  Age: 68 Year
  Sex: Female
  Weight: 41.72 kg

DRUGS (10)
  1. OPSUMIT [Suspect]
     Active Substance: MACITENTAN
     Dosage: 10 MG, QD
     Route: 048
     Dates: start: 20150316
  2. OPSUMIT [Suspect]
     Active Substance: MACITENTAN
     Indication: PULMONARY HYPERTENSION
     Dosage: 10 MG, QD
     Route: 048
     Dates: start: 20150316
  3. UPTRAVI [Suspect]
     Active Substance: SELEXIPAG
     Dosage: 1000 MCG, BID
     Route: 048
     Dates: start: 20160125
  4. UPTRAVI [Suspect]
     Active Substance: SELEXIPAG
     Dosage: 800 MCG, BID
     Route: 048
  5. UPTRAVI [Suspect]
     Active Substance: SELEXIPAG
     Indication: PULMONARY HYPERTENSION
     Dosage: 1200 MCG, BID
     Route: 048
     Dates: start: 20160125
  6. TYVASO [Suspect]
     Active Substance: TREPROSTINIL
     Indication: PULMONARY HYPERTENSION
     Dosage: 72 MCG, QID
     Route: 055
     Dates: start: 20150619
  7. SILDENAFIL. [Concomitant]
     Active Substance: SILDENAFIL
  8. UPTRAVI [Suspect]
     Active Substance: SELEXIPAG
     Dosage: UNK
     Route: 048
  9. AMLODIPINE [Concomitant]
     Active Substance: AMLODIPINE BESYLATE
  10. UPTRAVI [Suspect]
     Active Substance: SELEXIPAG
     Dosage: 80 MCG, BID
     Route: 048

REACTIONS (22)
  - Pain in extremity [Unknown]
  - Weight decreased [Unknown]
  - Multiple allergies [Unknown]
  - Oedema [Unknown]
  - Myalgia [Unknown]
  - Nasal congestion [Unknown]
  - Decreased appetite [Unknown]
  - Gastric disorder [Unknown]
  - Abdominal discomfort [Unknown]
  - Staphylococcal infection [Unknown]
  - Epistaxis [Unknown]
  - Sinusitis [Unknown]
  - Eructation [Unknown]
  - Pain [Unknown]
  - Gastrointestinal haemorrhage [Unknown]
  - Ulcer [Unknown]
  - Diarrhoea [Unknown]
  - Nausea [Unknown]
  - Arthralgia [Unknown]
  - Large intestinal haemorrhage [Unknown]
  - Product use issue [Unknown]
  - Malaise [Unknown]

NARRATIVE: CASE EVENT DATE: 20180809
